FAERS Safety Report 9635993 (Version 1)
Quarter: 2013Q4

REPORT INFORMATION
  Report Type: Spontaneous
  Country: US (occurrence: US)
  Receive Date: 20131021
  Receipt Date: 20131021
  Transmission Date: 20140711
  Serious: Yes (Death, Hospitalization, Other)
  Sender: FDA-Public Use
  Company Number: US-DYAX CORP.-2013DX000191

PATIENT
  Age: 78 Year
  Sex: Male

DRUGS (1)
  1. KALBITOR [Suspect]
     Indication: HEREDITARY ANGIOEDEMA
     Route: 058

REACTIONS (4)
  - Death [Fatal]
  - Pulmonary embolism [Recovered/Resolved]
  - Dyspnoea [Unknown]
  - Syncope [Unknown]
